FAERS Safety Report 24741063 (Version 1)
Quarter: 2024Q4

REPORT INFORMATION
  Report Type: Report from Study
  Country: IN (occurrence: IN)
  Receive Date: 20241217
  Receipt Date: 20241217
  Transmission Date: 20250115
  Serious: Yes (Other)
  Sender: ROCHE
  Company Number: IN-002147023-NVSC2024IN237652

PATIENT
  Age: 63 Year
  Sex: Male

DRUGS (1)
  1. RANIBIZUMAB [Suspect]
     Active Substance: RANIBIZUMAB
     Indication: Retinal vein occlusion
     Dosage: 0.5 MG, AS NEEDED
     Route: 050
     Dates: start: 20240809

REACTIONS (1)
  - Retinal exudates [Unknown]

NARRATIVE: CASE EVENT DATE: 20241209
